FAERS Safety Report 24421263 (Version 1)
Quarter: 2024Q4

REPORT INFORMATION
  Report Type: Spontaneous
  Country: US (occurrence: US)
  Receive Date: 20241010
  Receipt Date: 20241010
  Transmission Date: 20250114
  Serious: Yes (Other)
  Sender: AMNEAL
  Company Number: US-AMNEAL PHARMACEUTICALS-2024-AMRX-03669

PATIENT
  Age: 68 Year
  Sex: Male
  Weight: 108.84 kg

DRUGS (1)
  1. EZETIMIBE [Suspect]
     Active Substance: EZETIMIBE
     Indication: Product used for unknown indication
     Dosage: 1 TABLETS, QD
     Route: 048

REACTIONS (7)
  - Suicidal ideation [Recovered/Resolved]
  - Muscle spasms [Recovered/Resolved]
  - Reaction to excipient [Recovered/Resolved]
  - Decreased interest [Recovered/Resolved]
  - Myalgia [Recovered/Resolved]
  - Diarrhoea [Recovered/Resolved]
  - Product substitution issue [Unknown]
